FAERS Safety Report 9074549 (Version 1)
Quarter: 2013Q1

REPORT INFORMATION
  Report Type: Report from Study
  Country: US (occurrence: US)
  Receive Date: 20130129
  Receipt Date: 20130129
  Transmission Date: 20140127
  Serious: No
  Sender: FDA-Public Use
  Company Number: US-ABBOTT-12P-163-0928792-00

PATIENT
  Age: 47 Year
  Sex: Male

DRUGS (6)
  1. HUMIRA 40 MG/0.8 ML PEN [Suspect]
     Indication: ANKYLOSING SPONDYLITIS
     Dates: start: 20120323
  2. WELLBUTRIN XL [Concomitant]
     Indication: DEPRESSION
  3. SKELAXIN [Concomitant]
     Indication: MUSCLE RELAXANT THERAPY
  4. PERCOCET [Concomitant]
     Indication: PAIN
     Dosage: 10-650 MG
  5. ALEVE [Concomitant]
     Indication: BREAKTHROUGH PAIN
  6. KLONOPIN [Concomitant]
     Indication: INSOMNIA

REACTIONS (4)
  - Blister [Recovered/Resolved]
  - Pruritus [Not Recovered/Not Resolved]
  - Muscle spasms [Not Recovered/Not Resolved]
  - Injection site pain [Unknown]
